FAERS Safety Report 13854936 (Version 1)
Quarter: 2017Q3

REPORT INFORMATION
  Report Type: Spontaneous
  Country: JP (occurrence: JP)
  Receive Date: 20170810
  Receipt Date: 20170810
  Transmission Date: 20171127
  Serious: Yes (Death, Other)
  Sender: FDA-Public Use
  Company Number: JP-FRESENIUS KABI-FK201706609

PATIENT
  Age: 65 Year
  Sex: Male

DRUGS (4)
  1. CISPLATIN (MANUFACTURER UNKNOWN) [Suspect]
     Active Substance: CISPLATIN
     Indication: SMALL CELL LUNG CANCER
     Route: 065
  2. IRINOTECAN (MANUFACTURER UNKNOWN) [Suspect]
     Active Substance: IRINOTECAN
     Indication: SMALL CELL LUNG CANCER
     Route: 065
  3. ETOPOSIDE (MANUFACTURER UNKNOWN) [Suspect]
     Active Substance: ETOPOSIDE
     Indication: SMALL CELL LUNG CANCER
     Route: 065
  4. AMRUBICIN [Suspect]
     Active Substance: AMRUBICIN
     Indication: SMALL CELL LUNG CANCER

REACTIONS (5)
  - Pneumococcal infection [Fatal]
  - Septic shock [Fatal]
  - Acute kidney injury [Fatal]
  - Leukopenia [Unknown]
  - Neutropenia [Unknown]
